FAERS Safety Report 7217452-4 (Version None)
Quarter: 2011Q1

REPORT INFORMATION
  Report Type: 
  Country: None (occurrence: None)
  Receive Date: 20110110
  Receipt Date: 20110104
  Transmission Date: 20110831
  Serious: Yes (Life-Threatening, Other)
  Sender: FDA-Public Use
  Company Number: US-AMGEN LTD.-QUU416911

PATIENT

DRUGS (9)
  1. IMMUNOGLOBULINS [Concomitant]
     Dosage: UNK UNK, UNK
     Dates: start: 20050401, end: 20080228
  2. PREDNISONE [Concomitant]
     Dosage: UNK UNK, UNK
     Dates: start: 20100325, end: 20100617
  3. UNSPECIFIED ANTINEOPLASTIC AGENT [Concomitant]
  4. NPLATE [Suspect]
     Indication: IDIOPATHIC THROMBOCYTOPENIC PURPURA
     Dosage: 2 A?G/KG, QWK
     Route: 058
     Dates: start: 20090709, end: 20090901
  5. RITUXIMAB [Concomitant]
     Dosage: UNK UNK, UNK
     Dates: start: 20080228, end: 20090625
  6. VINCRISTINE SULFATE [Concomitant]
     Dosage: UNK UNK, UNK
     Dates: start: 20100325, end: 20100617
  7. NPLATE [Suspect]
     Dosage: 2 A?G/KG, UNK
     Dates: start: 20100218, end: 20100218
  8. RITUXIMAB [Concomitant]
     Dosage: UNK UNK, UNK
     Dates: start: 20100325, end: 20100617
  9. CYCLOPHOSPHAMIDE [Concomitant]
     Dosage: 2000 MG, Q3WK
     Dates: start: 20100325, end: 20100617

REACTIONS (3)
  - LYMPHOMA [None]
  - DRUG INEFFECTIVE [None]
  - THROMBOCYTOPENIA [None]
